FAERS Safety Report 16232660 (Version 1)
Quarter: 2019Q2

REPORT INFORMATION
  Report Type: Spontaneous
  Country: IT (occurrence: IT)
  Receive Date: 20190424
  Receipt Date: 20190424
  Transmission Date: 20190711
  Serious: Yes (Other)
  Sender: FDA-Public Use
  Company Number: IT-SA-2019SA112082

PATIENT
  Age: 39 Year
  Sex: Male

DRUGS (3)
  1. FERLIXIT [Suspect]
     Active Substance: SODIUM FERRIC GLUCONATE COMPLEX
     Indication: ANAEMIA
     Dosage: 1 DF, TOTAL
     Route: 042
     Dates: start: 20190402, end: 20190402
  2. CIPROXIN [CIPROFLOXACIN] [Concomitant]
     Route: 042
     Dates: start: 20190324, end: 20190402
  3. GLAZIDIM [Concomitant]
     Active Substance: CEFTAZIDIME
     Dosage: 4 G, QD
     Route: 042
     Dates: start: 20190324, end: 20190402

REACTIONS (1)
  - Erythema [Recovered/Resolved]

NARRATIVE: CASE EVENT DATE: 20190402
